FAERS Safety Report 8136144-0 (Version None)
Quarter: 2012Q1

REPORT INFORMATION
  Report Type: 
  Country: None (occurrence: None)
  Receive Date: 20120214
  Receipt Date: 20120201
  Transmission Date: 20120608
  Serious: Yes (Death, Life-Threatening)
  Sender: FDA-Public Use
  Company Number: PHHO2010DE19221

PATIENT
  Sex: Male
  Weight: 90 kg

DRUGS (3)
  1. TACROLIMUS [Suspect]
     Indication: LIVER TRANSPLANT
     Dosage: 8 MG, QD
     Route: 048
     Dates: start: 20100131, end: 20100208
  2. PREDNISONE TAB [Suspect]
     Indication: LIVER TRANSPLANT
     Dosage: 20 MG, QD
     Route: 048
     Dates: start: 20100205, end: 20100208
  3. MYCOPHENOLATE MOFETIL (CELLCEPT) [Suspect]
     Indication: LIVER TRANSPLANT
     Dosage: 2 G, QD
     Route: 048
     Dates: start: 20100131, end: 20100208

REACTIONS (4)
  - SEPSIS [None]
  - PNEUMONIA [None]
  - RENAL FAILURE [None]
  - ABDOMINAL ABSCESS [None]
